FAERS Safety Report 7370167-4 (Version None)
Quarter: 2011Q1

REPORT INFORMATION
  Report Type: 
  Country: None (occurrence: None)
  Receive Date: 20110323
  Receipt Date: 20101007
  Transmission Date: 20110831
  Serious: No
  Sender: FDA-Public Use
  Company Number: US-ASTRAZENECA-2010SE47762

PATIENT
  Age: 68 Year
  Sex: Female
  Weight: 59 kg

DRUGS (1)
  1. ZESTRIL [Suspect]
     Route: 048

REACTIONS (3)
  - OESOPHAGITIS [None]
  - THROAT IRRITATION [None]
  - COUGH [None]
